FAERS Safety Report 7495040-2 (Version None)
Quarter: 2011Q2

REPORT INFORMATION
  Report Type: 
  Country: None (occurrence: None)
  Receive Date: 20110520
  Receipt Date: 20110510
  Transmission Date: 20111010
  Serious: Yes (Hospitalization, Other)
  Sender: FDA-Public Use
  Company Number: US-CELGENEUS-163-20785-11032894

PATIENT
  Sex: Female
  Weight: 57.658 kg

DRUGS (9)
  1. THALOMID [Suspect]
     Dosage: 50 MILLIGRAM
     Route: 048
     Dates: start: 20110209, end: 20110401
  2. CORTICOSTEROIDS [Concomitant]
  3. OXYGEN [Concomitant]
     Route: 065
  4. ANAGRELIDE HCL [Concomitant]
     Indication: THROMBOCYTOSIS
     Dosage: .5 MILLIGRAM
     Route: 048
     Dates: start: 20020101, end: 20100101
  5. MELPHALAN HYDROCHLORIDE [Concomitant]
     Dosage: 20 MILLIGRAM
     Route: 048
     Dates: start: 20101221
  6. COUMADIN [Concomitant]
     Route: 065
  7. MELPHALAN HYDROCHLORIDE [Concomitant]
     Dosage: 40 MILLIGRAM
     Route: 048
     Dates: start: 20101228
  8. THALOMID [Suspect]
     Indication: MYELOFIBROSIS
     Dosage: 50 MILLIGRAM
     Route: 048
     Dates: start: 20101228, end: 20110104
  9. MELPHALAN HYDROCHLORIDE [Concomitant]
     Dosage: 10 MILLIGRAM
     Route: 048

REACTIONS (6)
  - HAEMOGLOBIN DECREASED [None]
  - ASTHENIA [None]
  - BALANCE DISORDER [None]
  - OEDEMA PERIPHERAL [None]
  - FALL [None]
  - ACUTE RESPIRATORY FAILURE [None]
